FAERS Safety Report 4556718-3 (Version None)
Quarter: 2005Q1

REPORT INFORMATION
  Report Type: 
  Country: None (occurrence: None)
  Receive Date: 20050114
  Receipt Date: 20041230
  Transmission Date: 20050727
  Serious: Yes (Hospitalization, Other)
  Sender: FDA-Public Use
  Company Number: 193816

PATIENT
  Age: 49 Year
  Sex: Female
  Weight: 68.0396 kg

DRUGS (6)
  1. AVONEX [Suspect]
     Indication: MULTIPLE SCLEROSIS
     Dosage: 30 UG;QW;IM
     Route: 030
     Dates: start: 20031110
  2. LEXAPRO [Concomitant]
  3. DITROPAN [Concomitant]
  4. LIORESAL [Concomitant]
  5. NEURONTIN [Concomitant]
  6. TIZANIDINE [Concomitant]

REACTIONS (5)
  - BLADDER DISORDER [None]
  - LYMPHADENOPATHY [None]
  - NEPHRECTOMY [None]
  - RENAL CELL CARCINOMA STAGE II [None]
  - URINARY TRACT INFECTION [None]
